FAERS Safety Report 9183155 (Version 1)
Quarter: 2012Q4

REPORT INFORMATION
  Report Type: Report from Study
  Country: HK (occurrence: HK)
  Receive Date: 20121031
  Receipt Date: 20121031
  Transmission Date: 20130627
  Serious: Yes (Hospitalization, Other)
  Sender: FDA-Public Use
  Company Number: HK-RB-046138-12

PATIENT
  Age: 60 Year
  Sex: Female

DRUGS (3)
  1. DETTOL (BENZALKONIUM CHLORIDE\LIDOCAINE HYDROCHLORIDE) [Suspect]
     Indication: PRODUCT USED FOR UNKNOWN INDICATION
     Dosage: Patient consumed unknown ammount of the product orally.
     Route: 048
  2. LISTERINE [Suspect]
     Indication: PRODUCT USED FOR UNKNOWN INDICATION
     Route: 048
  3. LISTERINE [Suspect]
     Indication: PRODUCT USED FOR UNKNOWN INDICATION
     Route: 048

REACTIONS (7)
  - Toxicity to various agents [Recovered/Resolved]
  - Obstructive airways disorder [Recovered/Resolved]
  - Incorrect route of drug administration [Recovered/Resolved]
  - Coma scale abnormal [None]
  - Foreign body [None]
  - Vomiting [None]
  - Respiratory tract oedema [None]
